FAERS Safety Report 19735540 (Version 1)
Quarter: 2021Q3

REPORT INFORMATION
  Report Type: Spontaneous
  Country: CA (occurrence: CA)
  Receive Date: 20210823
  Receipt Date: 20210823
  Transmission Date: 20211014
  Serious: Yes (Hospitalization)
  Sender: FDA-Public Use
  Company Number: CA-TILLOMEDPR-2021-EPL-002705

PATIENT
  Age: 30 Year
  Sex: Female
  Weight: 45 kg

DRUGS (9)
  1. ONDANSETRON [Suspect]
     Active Substance: ONDANSETRON
     Dosage: 4 MILLIGRAM, 1 EVERY 8 HOURS
     Route: 042
  2. DIPHENHYDRAMINE. [Concomitant]
     Active Substance: DIPHENHYDRAMINE
  3. METOCLOPRAMIDE. [Concomitant]
     Active Substance: METOCLOPRAMIDE
  4. HYDROXYZINE [Concomitant]
     Active Substance: HYDROXYZINE HYDROCHLORIDE
  5. OMEPRAZOLE. [Concomitant]
     Active Substance: OMEPRAZOLE
  6. ONDANSETRON [Suspect]
     Active Substance: ONDANSETRON
     Indication: HYPEREMESIS GRAVIDARUM
     Dosage: 4 MILLIGRAM, 3 EVERY 1 DAYS
     Route: 048
  7. PYRIDOXINE [Concomitant]
     Active Substance: PYRIDOXINE
  8. RANITIDINE. [Concomitant]
     Active Substance: RANITIDINE
  9. FAMOTIDINE. [Concomitant]
     Active Substance: FAMOTIDINE

REACTIONS (9)
  - Muscle spasms [Unknown]
  - Tachycardia [Unknown]
  - Urinary retention [Unknown]
  - Restless arm syndrome [Unknown]
  - Abdominal pain [Unknown]
  - Electric shock sensation [Unknown]
  - Palpitations [Unknown]
  - Restless legs syndrome [Unknown]
  - Urethral pain [Unknown]
